FAERS Safety Report 8776374 (Version 2)
Quarter: 2012Q4

REPORT INFORMATION
  Report Type: 
  Country: US (occurrence: US)
  Receive Date: 20120910
  Receipt Date: 20120912
  Transmission Date: 20130627
  Serious: Yes (Life-Threatening, Other)
  Sender: FDA-Public Use
  Company Number: US-ASTRAZENECA-2012SE70209

PATIENT
  Age: 45 Year
  Sex: Male

DRUGS (5)
  1. TOPROL XL [Suspect]
     Route: 048
  2. OXYCONTIN [Suspect]
  3. COUMADIN [Concomitant]
  4. PERCOCET [Concomitant]
  5. HYDROCODONE [Concomitant]

REACTIONS (11)
  - Systemic inflammatory response syndrome [Unknown]
  - Dehydration [Unknown]
  - Thrombosis [Unknown]
  - Rhabdomyolysis [Unknown]
  - Renal failure acute [Recovered/Resolved]
  - Nerve injury [Unknown]
  - Hypertension [Unknown]
  - Anaemia [Unknown]
  - Tachycardia [Unknown]
  - Pain [Unknown]
  - Asocial behaviour [Unknown]
